FAERS Safety Report 20130480 (Version 2)
Quarter: 2023Q2

REPORT INFORMATION
  Report Type: Report from Study
  Country: DE (occurrence: DE)
  Receive Date: 20211130
  Receipt Date: 20230508
  Transmission Date: 20230721
  Serious: Yes (Life-Threatening, Hospitalization, Other)
  Sender: FDA-Public Use
  Company Number: DE-002147023-PHHY2019DE224135

PATIENT
  Sex: Female

DRUGS (3)
  1. LETROZOLE [Suspect]
     Active Substance: LETROZOLE
     Indication: Breast cancer metastatic
     Dosage: 2.5 MILLIGRAM, QD, 2.5 MG, QD (1-0-0)
     Route: 048
     Dates: start: 20190123, end: 20190920
  2. KISQALI [Suspect]
     Active Substance: RIBOCICLIB
     Indication: Breast cancer metastatic
     Dosage: 600 MG, QD, 600 MG, QD (SCHEMA 21 DAYS INTA
     Route: 048
     Dates: start: 20190703, end: 20190920
  3. KISQALI [Suspect]
     Active Substance: RIBOCICLIB
     Dosage: 200 MG, 200 MG, UNK (SCHEMA 21 DAYS INTAKE
     Route: 048
     Dates: start: 20190123, end: 20190616

REACTIONS (2)
  - Pneumonia aspiration [Recovered/Resolved]
  - Meningitis [Recovered/Resolved with Sequelae]

NARRATIVE: CASE EVENT DATE: 20190921
